FAERS Safety Report 6095568-6 (Version None)
Quarter: 2009Q1

REPORT INFORMATION
  Report Type: 
  Country: None (occurrence: None)
  Receive Date: 20090227
  Receipt Date: 20080428
  Transmission Date: 20090719
  Serious: No
  Sender: FDA-Public Use
  Company Number: A0725070A

PATIENT
  Age: 65 Year
  Sex: Female

DRUGS (5)
  1. LAMICTAL [Suspect]
     Indication: PARTIAL SEIZURES
     Dosage: 75MG VARIABLE DOSE
     Route: 048
     Dates: start: 20080201
  2. VERAPAMIL [Concomitant]
  3. LISINOPRIL [Concomitant]
  4. BUMEX [Concomitant]
  5. IMIPRAMINE [Concomitant]

REACTIONS (3)
  - GOUT [None]
  - PAIN IN EXTREMITY [None]
  - RASH MACULAR [None]
